FAERS Safety Report 5716542-2 (Version None)
Quarter: 2008Q2

REPORT INFORMATION
  Report Type: 
  Country: None (occurrence: None)
  Receive Date: 20080424
  Receipt Date: 20080415
  Transmission Date: 20081010
  Serious: Yes (Hospitalization)
  Sender: FDA-Public Use
  Company Number: AU-ELI_LILLY_AND_COMPANY-AU200804004312

PATIENT
  Age: 50 Year
  Sex: Male

DRUGS (7)
  1. BYETTA [Suspect]
     Indication: DIABETES MELLITUS
     Dosage: 5 UG, 2/D
     Route: 058
     Dates: start: 20080311
  2. ACIMAX [Concomitant]
     Dosage: 20 MG, UNKNOWN
     Route: 065
  3. DIABEX [Concomitant]
     Dosage: 100 MG, 2/D
     Route: 065
  4. ASPIRIN [Concomitant]
     Dosage: 150 MG, UNKNOWN
     Route: 065
  5. TRITACE [Concomitant]
     Dosage: 10 MG, UNKNOWN
     Route: 065
  6. LIPEX [Concomitant]
     Dosage: 40 MG, UNKNOWN
     Route: 065
  7. MIXTARD /00646001/ [Concomitant]
     Dosage: 200 U, UNKNOWN
     Route: 065

REACTIONS (1)
  - BLOOD PRESSURE DECREASED [None]
